FAERS Safety Report 7389891-2 (Version None)
Quarter: 2011Q2

REPORT INFORMATION
  Report Type: 
  Country: None (occurrence: None)
  Receive Date: 20110401
  Receipt Date: 20110321
  Transmission Date: 20111010
  Serious: Yes (Hospitalization)
  Sender: FDA-Public Use
  Company Number: US-BAYER-2011-027741

PATIENT
  Sex: Female
  Weight: 96 kg

DRUGS (7)
  1. YAZ [Suspect]
     Indication: PREMENSTRUAL SYNDROME
     Dosage: UNK
     Dates: start: 20030101, end: 20090301
  2. ETODOLAC [Concomitant]
     Dosage: 400 MG, UNK
     Route: 048
  3. ADDERALL 10 [Concomitant]
     Dosage: 20 MG, QD
     Route: 048
  4. YASMIN [Suspect]
     Indication: PREMENSTRUAL SYNDROME
     Dosage: UNK
     Dates: start: 20030101, end: 20090301
  5. FLUOXETINE [Concomitant]
     Dosage: 40 MG, BID
     Route: 048
  6. TRAMADOL [Concomitant]
     Dosage: 50 MG, PRN
     Route: 048
  7. ALLEGRA [Concomitant]

REACTIONS (2)
  - THROMBOSIS [None]
  - DEEP VEIN THROMBOSIS [None]
